FAERS Safety Report 5678305-6 (Version None)
Quarter: 2008Q1

REPORT INFORMATION
  Report Type: 
  Country: None (occurrence: None)
  Receive Date: 20080320
  Receipt Date: 20080314
  Transmission Date: 20080703
  Serious: Yes (Other)
  Sender: FDA-Public Use
  Company Number: 2008006516

PATIENT
  Sex: Female

DRUGS (1)
  1. NICORETTE [Suspect]
     Dosage: TRANSDERMAL
     Route: 062
     Dates: start: 20071001

REACTIONS (2)
  - BREAST MASS [None]
  - LYMPHADENOPATHY [None]
